FAERS Safety Report 11251399 (Version 1)
Quarter: 2015Q3

REPORT INFORMATION
  Report Type: Spontaneous
  Country: US (occurrence: US)
  Receive Date: 20150708
  Receipt Date: 20150708
  Transmission Date: 20151125
  Serious: No
  Sender: FDA-Public Use
  Company Number: US-ELI_LILLY_AND_COMPANY-US201108004931

PATIENT
  Sex: Female
  Weight: 81.63 kg

DRUGS (4)
  1. FLUOXETINE HYDROCHLORIDE. [Suspect]
     Active Substance: FLUOXETINE HYDROCHLORIDE
     Indication: DEPRESSION
     Dosage: 20 MG, TID
     Route: 048
     Dates: start: 2004
  2. BALSALAZIDE [Concomitant]
     Active Substance: BALSALAZIDE
     Dosage: UNK
     Dates: start: 201107
  3. XEOMIN [Concomitant]
     Active Substance: INCOBOTULINUMTOXINA
     Indication: TORTICOLLIS
     Dosage: UNK
     Route: 030
     Dates: start: 20110107
  4. BACLOFEN. [Concomitant]
     Active Substance: BACLOFEN
     Dosage: UNK
     Dates: start: 201010

REACTIONS (9)
  - Multiple sclerosis [Unknown]
  - Anxiety [Unknown]
  - Stress [Unknown]
  - Neck pain [Unknown]
  - Colitis ulcerative [Unknown]
  - Depression [Unknown]
  - Dysphagia [Not Recovered/Not Resolved]
  - Headache [Unknown]
  - Dizziness [Not Recovered/Not Resolved]
